FAERS Safety Report 6763407-3 (Version None)
Quarter: 2010Q2

REPORT INFORMATION
  Report Type: 
  Country: None (occurrence: None)
  Receive Date: 20100610
  Receipt Date: 20100603
  Transmission Date: 20101027
  Serious: Yes (Hospitalization, Other)
  Sender: FDA-Public Use
  Company Number: US-BAYER-201023128NA

PATIENT
  Age: 43 Year
  Sex: Male

DRUGS (5)
  1. BETASERON [Suspect]
     Indication: RELAPSING-REMITTING MULTIPLE SCLEROSIS
     Route: 058
     Dates: start: 20060101, end: 20090901
  2. LYRICA [Suspect]
  3. NEURONTIN [Concomitant]
     Dosage: TOTAL DAILY DOSE: 1800 MG
  4. BACLOFEN [Concomitant]
     Dosage: UNKNOWN DOSAGE
  5. TYSABRI [Concomitant]

REACTIONS (7)
  - BRADYCARDIA [None]
  - CARDIAC ARREST [None]
  - CARDIAC DISORDER [None]
  - FALL [None]
  - HEART RATE DECREASED [None]
  - NEUROGENIC BLADDER [None]
  - URINARY RETENTION [None]
